FAERS Safety Report 24405884 (Version 3)
Quarter: 2024Q4

REPORT INFORMATION
  Report Type: Report from Study
  Country: US (occurrence: US)
  Receive Date: 20241007
  Receipt Date: 20241126
  Transmission Date: 20250114
  Serious: Yes (Other)
  Sender: OTSUKA
  Company Number: US-OTSUKA-2023_010784

PATIENT
  Age: 45 Year
  Sex: Female
  Weight: 81.65 kg

DRUGS (4)
  1. TOLVAPTAN [Suspect]
     Active Substance: TOLVAPTAN
     Indication: Congenital cystic kidney disease
     Dosage: 15 MG, BID (EVERY 8 HRS)
     Route: 065
     Dates: start: 20230405
  2. TOLVAPTAN [Suspect]
     Active Substance: TOLVAPTAN
     Dosage: UNK
     Route: 065
     Dates: start: 20240528
  3. OZEMPIC [Suspect]
     Active Substance: SEMAGLUTIDE
     Indication: Product used for unknown indication
     Dosage: UNK
     Route: 065
  4. KLONOPIN [Concomitant]
     Active Substance: CLONAZEPAM
     Indication: Product used for unknown indication
     Dosage: UNK
     Route: 065

REACTIONS (27)
  - Lipoma excision [Unknown]
  - Lipoma [Unknown]
  - Renal impairment [Unknown]
  - Ovarian cyst [Unknown]
  - Chromaturia [Unknown]
  - Influenza [Recovered/Resolved]
  - Influenza [Recovering/Resolving]
  - Mental disorder [Unknown]
  - Abdominal discomfort [Recovered/Resolved]
  - Iron deficiency anaemia [Unknown]
  - Renal pain [Unknown]
  - Hypotension [Not Recovered/Not Resolved]
  - Malaise [Unknown]
  - Blood creatinine increased [Unknown]
  - Pyrexia [Recovering/Resolving]
  - Glomerular filtration rate decreased [Unknown]
  - Weight decreased [Unknown]
  - Gout [Unknown]
  - Constipation [Not Recovered/Not Resolved]
  - Polydipsia [Not Recovered/Not Resolved]
  - Headache [Recovering/Resolving]
  - Pollakiuria [Unknown]
  - Polyuria [Recovering/Resolving]
  - Liver function test increased [Unknown]
  - Thirst [Unknown]
  - Underdose [Unknown]
  - Treatment delayed [Unknown]

NARRATIVE: CASE EVENT DATE: 20230408
